FAERS Safety Report 7642139-3 (Version None)
Quarter: 2011Q3

REPORT INFORMATION
  Report Type: 
  Country: None (occurrence: None)
  Receive Date: 20110728
  Receipt Date: 20110718
  Transmission Date: 20111222
  Serious: Yes (Other)
  Sender: FDA-Public Use
  Company Number: FR-CELGENEUS-056-21880-11022195

PATIENT
  Age: 56 Year
  Sex: Male

DRUGS (4)
  1. DEXAMETHASONE [Concomitant]
     Indication: MULTIPLE MYELOMA
     Dosage: 20 MILLIGRAM
     Route: 065
     Dates: start: 20101001
  2. REVLIMID [Suspect]
     Indication: MULTIPLE MYELOMA
     Route: 048
     Dates: start: 20101001
  3. VALACYCLOVIR HYDROCHLORIDE [Concomitant]
     Route: 065
  4. CORTICOSTEROIDS [Concomitant]
     Route: 065

REACTIONS (1)
  - HENOCH-SCHONLEIN PURPURA [None]
